FAERS Safety Report 7964354-1 (Version None)
Quarter: 2011Q4

REPORT INFORMATION
  Report Type: 
  Country: None (occurrence: None)
  Receive Date: 20111208
  Receipt Date: 20111128
  Transmission Date: 20120403
  Serious: Yes (Hospitalization)
  Sender: FDA-Public Use
  Company Number: US-BAYER-2011-029567

PATIENT
  Age: 32 Year
  Sex: Female
  Weight: 86.168 kg

DRUGS (2)
  1. YASMIN [Suspect]
     Dosage: UNK
     Dates: start: 20010101, end: 20090201
  2. DROSPIRENONE AND ETHINYL ESTRADIOL [Suspect]
     Dosage: UNK
     Dates: start: 20010101, end: 20090201

REACTIONS (3)
  - GALLBLADDER DISORDER [None]
  - CHOLECYSTITIS [None]
  - PAIN [None]
